FAERS Safety Report 11869629 (Version 1)
Quarter: 2015Q4

REPORT INFORMATION
  Report Type: Spontaneous
  Country: US (occurrence: US)
  Receive Date: 20151228
  Receipt Date: 20151228
  Transmission Date: 20160305
  Serious: Yes (Other)
  Sender: FDA-Public Use
  Company Number: US-ROCHE-1683473

PATIENT
  Sex: Male
  Weight: 104.42 kg

DRUGS (1)
  1. ESBRIET [Suspect]
     Active Substance: PIRFENIDONE
     Indication: IDIOPATHIC PULMONARY FIBROSIS
     Dosage: TOTAL- 2403 MG DAILY, 3 CAPS PO TID
     Route: 048
     Dates: start: 20150312

REACTIONS (4)
  - Bronchitis [Unknown]
  - Throat cancer [Unknown]
  - Sinusitis [Unknown]
  - Weight decreased [Unknown]
